FAERS Safety Report 25044546 (Version 1)
Quarter: 2025Q1

REPORT INFORMATION
  Report Type: Spontaneous
  Country: US (occurrence: US)
  Receive Date: 20250306
  Receipt Date: 20250306
  Transmission Date: 20250408
  Serious: No
  Sender: ALVOGEN
  Company Number: US-ALVOGEN-2024094462

PATIENT

DRUGS (2)
  1. BUPRENORPHINE HYDROCHLORIDE AND NALOXONE HYDROCHLORIDE [Suspect]
     Active Substance: BUPRENORPHINE HYDROCHLORIDE\NALOXONE HYDROCHLORIDE
     Indication: Product used for unknown indication
     Dates: start: 2023
  2. BUPRENORPHINE HYDROCHLORIDE AND NALOXONE HYDROCHLORIDE [Suspect]
     Active Substance: BUPRENORPHINE HYDROCHLORIDE\NALOXONE HYDROCHLORIDE
     Indication: Product used for unknown indication
     Dates: start: 2023

REACTIONS (5)
  - Illness [Unknown]
  - Withdrawal syndrome [Unknown]
  - Drug effect less than expected [Unknown]
  - Product solubility abnormal [Unknown]
  - Product physical issue [Unknown]
